FAERS Safety Report 8190549-0 (Version None)
Quarter: 2012Q1

REPORT INFORMATION
  Report Type: 
  Country: None (occurrence: None)
  Receive Date: 20120307
  Receipt Date: 20120228
  Transmission Date: 20120608
  Serious: Yes (Other)
  Sender: FDA-Public Use
  Company Number: FR-FRI-1000028862

PATIENT
  Age: 52 Year
  Sex: Female

DRUGS (2)
  1. ESCITALOPRAM [Suspect]
     Dosage: 10 MG
     Dates: start: 20110201, end: 20120225
  2. ESCITALOPRAM [Suspect]
     Route: 048
     Dates: start: 20120201, end: 20120101

REACTIONS (1)
  - VENTRICULAR EXTRASYSTOLES [None]
